FAERS Safety Report 13534980 (Version 1)
Quarter: 2017Q2

REPORT INFORMATION
  Report Type: Spontaneous
  Country: US (occurrence: US)
  Receive Date: 20170510
  Receipt Date: 20170510
  Transmission Date: 20170830
  Serious: Yes (Disabling)
  Sender: FDA-Public Use
  Company Number: None

PATIENT
  Age: 45 Year
  Sex: Female
  Weight: 52.65 kg

DRUGS (4)
  1. CIPROFLOXACIN. [Suspect]
     Active Substance: CIPROFLOXACIN
     Indication: PSEUDOMONAS INFECTION
     Dosage: ?          QUANTITY:30 TABLET(S);?
     Route: 048
     Dates: start: 20161205, end: 20170509
  2. PERCOCET [Suspect]
     Active Substance: ACETAMINOPHEN\OXYCODONE HYDROCHLORIDE
  3. VALIUM [Concomitant]
     Active Substance: DIAZEPAM
  4. VITAMIN D [Concomitant]
     Active Substance: CHOLECALCIFEROL

REACTIONS (23)
  - Nausea [None]
  - Dizziness [None]
  - Tendon pain [None]
  - Alopecia [None]
  - Dyspnoea [None]
  - Cough [None]
  - Rash [None]
  - Throat tightness [None]
  - Headache [None]
  - Balance disorder [None]
  - Visual impairment [None]
  - Fatigue [None]
  - Myalgia [None]
  - Mobility decreased [None]
  - Paraesthesia [None]
  - Diarrhoea [None]
  - Insomnia [None]
  - Vomiting [None]
  - Pruritus [None]
  - Swelling [None]
  - Arthralgia [None]
  - Hypoaesthesia [None]
  - Chest pain [None]

NARRATIVE: CASE EVENT DATE: 20170110
